FAERS Safety Report 4659077-0 (Version None)
Quarter: 2005Q2

REPORT INFORMATION
  Report Type: 
  Country: None (occurrence: None)
  Receive Date: 20050511
  Receipt Date: 20050509
  Transmission Date: 20051028
  Serious: Yes (Disabling)
  Sender: FDA-Public Use
  Company Number: PHBS2005ES06400

PATIENT
  Age: 73 Year
  Sex: Male

DRUGS (4)
  1. MELPHALAN [Concomitant]
     Dates: start: 20020301, end: 20030901
  2. PREDNISONE TAB [Concomitant]
     Dates: start: 20020301, end: 20030901
  3. CALCIUM SANDOZ FORTE D [Concomitant]
  4. ZOMETA [Suspect]
     Indication: MULTIPLE MYELOMA
     Dosage: 4 MG, QMO
     Route: 042
     Dates: start: 20030410, end: 20050214

REACTIONS (2)
  - ASEPTIC NECROSIS BONE [None]
  - TOOTH EXTRACTION [None]
